FAERS Safety Report 25817058 (Version 1)
Quarter: 2025Q3

REPORT INFORMATION
  Report Type: Spontaneous
  Country: US (occurrence: None)
  Receive Date: 20250917
  Receipt Date: 20250917
  Transmission Date: 20251020
  Serious: No
  Sender: FDA-CTU
  Company Number: None

PATIENT
  Age: 61 Year
  Sex: Female

DRUGS (4)
  1. LENALIDOMIDE [Suspect]
     Active Substance: LENALIDOMIDE
     Indication: Plasma cell myeloma
     Dosage: FREQUENCY : DAILY;?
     Route: 048
     Dates: start: 20250814
  2. ISATUXIMAB [Suspect]
     Active Substance: ISATUXIMAB
  3. BORTEZOMIB [Suspect]
     Active Substance: BORTEZOMIB
  4. DEXAMETHASONE [Suspect]
     Active Substance: DEXAMETHASONE

REACTIONS (4)
  - Electric shock sensation [None]
  - Pain [None]
  - Rash [None]
  - Muscle spasms [None]

NARRATIVE: CASE EVENT DATE: 20250826
